FAERS Safety Report 8308286-8 (Version None)
Quarter: 2012Q2

REPORT INFORMATION
  Report Type: 
  Country: None (occurrence: None)
  Receive Date: 20120424
  Receipt Date: 20120418
  Transmission Date: 20120825
  Serious: Yes (Death, Other)
  Sender: FDA-Public Use
  Company Number: US-PFIZER INC-2012097272

PATIENT
  Age: 21 Year
  Sex: Male

DRUGS (8)
  1. ADDERALL 5 [Suspect]
     Dosage: UNK
  2. CHLORDIAZEPOXIDE [Suspect]
     Dosage: UNK
  3. DIPHENHYDRAMINE HCL [Suspect]
     Dosage: UNK
  4. COCAINE [Suspect]
     Dosage: UNK
  5. MORPHINE SULFATE [Suspect]
     Dosage: UNK
  6. NORDAZEPAM [Suspect]
     Dosage: UNK
  7. XANAX [Suspect]
     Dosage: UNK
  8. HEROIN [Suspect]
     Dosage: UNK

REACTIONS (3)
  - ACCIDENTAL DEATH [None]
  - TOXICITY TO VARIOUS AGENTS [None]
  - DRUG ABUSE [None]
